FAERS Safety Report 9483141 (Version 2)
Quarter: 2013Q3

REPORT INFORMATION
  Report Type: Spontaneous
  Country: US (occurrence: US)
  Receive Date: 20130828
  Receipt Date: 20130828
  Transmission Date: 20140515
  Serious: Yes (Other)
  Sender: FDA-Public Use
  Company Number: US-AMGEN-US146439

PATIENT
  Age: 61 Year
  Sex: Male

DRUGS (12)
  1. ENBREL [Suspect]
     Indication: PSORIASIS
     Dosage: 50 MG, 2 TIMES/WK
     Route: 065
     Dates: start: 20041101
  2. CELECOXIB [Concomitant]
  3. ROSUVASTATIN CALCIUM [Concomitant]
  4. ASPIRIN [Concomitant]
  5. OMEPRAZOLE [Concomitant]
  6. ENALAPRIL MALEATE [Concomitant]
  7. HYDROCHLOROTHIAZIDE [Concomitant]
  8. METFORMIN [Concomitant]
  9. MODAFINIL [Concomitant]
  10. LORAZEPAM [Concomitant]
  11. GABAPENTIN [Concomitant]
  12. OLANZAPINE [Concomitant]

REACTIONS (4)
  - Malignant melanoma [Unknown]
  - Diabetes mellitus [Unknown]
  - Blood cholesterol increased [Unknown]
  - Blood triglycerides increased [Unknown]
